FAERS Safety Report 7220357-6 (Version None)
Quarter: 2011Q1

REPORT INFORMATION
  Report Type: 
  Country: None (occurrence: None)
  Receive Date: 20110111
  Receipt Date: 20110104
  Transmission Date: 20110831
  Serious: Yes (Other)
  Sender: FDA-Public Use
  Company Number: US-US-EMD SERONO, INC.-7014251

PATIENT
  Sex: Female
  Weight: 86 kg

DRUGS (3)
  1. SINGULAIR [Concomitant]
     Indication: ASTHMA
  2. REBIF [Suspect]
     Indication: MULTIPLE SCLEROSIS
     Route: 058
     Dates: start: 20090828
  3. RHINOCORT [Concomitant]
     Indication: ASTHMA

REACTIONS (5)
  - PANCREATITIS [None]
  - CHOLECYSTECTOMY [None]
  - BRONCHITIS [None]
  - STRESS [None]
  - HEADACHE [None]
